FAERS Safety Report 14122640 (Version 3)
Quarter: 2018Q1

REPORT INFORMATION
  Report Type: Spontaneous
  Country: IT (occurrence: IT)
  Receive Date: 20171024
  Receipt Date: 20180228
  Transmission Date: 20180508
  Serious: Yes (Death)
  Sender: FDA-Public Use
  Company Number: IT-ASTRAZENECA-2017SF07981

PATIENT
  Age: 26488 Day
  Sex: Female

DRUGS (6)
  1. SELOKEN [Concomitant]
     Active Substance: METOPROLOL
     Dosage: 1 VIAL
  2. FLECTADOL [Concomitant]
     Dosage: 250.0MG UNKNOWN
     Route: 042
  3. BRILIQUE [Suspect]
     Active Substance: TICAGRELOR
     Indication: CORONARY ANGIOPLASTY
     Dosage: 90 WAS USED AT 10 AM AND AT 18 HOUR
     Route: 048
     Dates: start: 20171018, end: 20171018
  4. CARDIOASPIRIN [Concomitant]
     Active Substance: ASPIRIN
  5. HEPARIN [Concomitant]
     Active Substance: HEPARIN SODIUM
     Dosage: 5000 U
  6. RABEPRAZOLE [Concomitant]
     Active Substance: RABEPRAZOLE
     Dosage: 20.0MG UNKNOWN
     Route: 048

REACTIONS (1)
  - Cerebral haemorrhage [Fatal]

NARRATIVE: CASE EVENT DATE: 20171018
